FAERS Safety Report 6135339-5 (Version None)
Quarter: 2009Q1

REPORT INFORMATION
  Report Type: 
  Country: None (occurrence: None)
  Receive Date: 20090327
  Receipt Date: 20090219
  Transmission Date: 20090719
  Serious: No
  Sender: FDA-Public Use
  Company Number: US-BRISTOL-MYERS SQUIBB COMPANY-14513352

PATIENT
  Age: 54 Year
  Sex: Male
  Weight: 95 kg

DRUGS (4)
  1. SPRYCEL [Suspect]
     Indication: CHRONIC MYELOID LEUKAEMIA
     Dates: start: 20090115
  2. NAPROXEN [Concomitant]
  3. FERROUS SULFATE TAB [Concomitant]
  4. NEXIUM [Concomitant]

REACTIONS (2)
  - HEADACHE [None]
  - MYALGIA [None]
